FAERS Safety Report 24729077 (Version 2)
Quarter: 2024Q4

REPORT INFORMATION
  Report Type: Report from Study
  Country: US (occurrence: US)
  Receive Date: 20241213
  Receipt Date: 20241230
  Transmission Date: 20250114
  Serious: Yes (Hospitalization)
  Sender: ABBVIE
  Company Number: US-ABBVIE-6042809

PATIENT
  Age: 50 Year
  Sex: Male
  Weight: 90.718 kg

DRUGS (1)
  1. CREON [Suspect]
     Active Substance: PANCRELIPASE AMYLASE\PANCRELIPASE LIPASE\PANCRELIPASE PROTEASE
     Indication: Pancreatitis chronic
     Dosage: 2 CAPSULES EACH MEAL
     Route: 048
     Dates: start: 202310

REACTIONS (7)
  - Diabetes mellitus [Recovered/Resolved with Sequelae]
  - Chest pain [Recovered/Resolved]
  - Diabetes mellitus [Unknown]
  - Hypertension [Recovered/Resolved]
  - Pancreatitis chronic [Unknown]
  - Tachycardia [Not Recovered/Not Resolved]
  - Arteriosclerosis [Recovering/Resolving]

NARRATIVE: CASE EVENT DATE: 20240101
